FAERS Safety Report 14248792 (Version 2)
Quarter: 2018Q1

REPORT INFORMATION
  Report Type: Spontaneous
  Country: BR (occurrence: BR)
  Receive Date: 20171204
  Receipt Date: 20180226
  Transmission Date: 20180508
  Serious: Yes (Life-Threatening, Other)
  Sender: FDA-Public Use
  Company Number: PHHY2017BR177468

PATIENT
  Sex: Female
  Weight: 62 kg

DRUGS (2)
  1. FORASEQ [Suspect]
     Active Substance: BUDESONIDE\FORMOTEROL FUMARATE
     Indication: ASTHMA
     Dosage: 1 DF, BID
     Route: 055
  2. FORASEQ [Suspect]
     Active Substance: BUDESONIDE\FORMOTEROL FUMARATE
     Dosage: 1 DF, QD
     Route: 055

REACTIONS (3)
  - Insomnia [Recovered/Resolved]
  - Asthma [Recovered/Resolved]
  - Feeling abnormal [Not Recovered/Not Resolved]
